FAERS Safety Report 9914941 (Version 4)
Quarter: 2014Q2

REPORT INFORMATION
  Report Type: Report from Study
  Country: US (occurrence: US)
  Receive Date: 20140220
  Receipt Date: 20140523
  Transmission Date: 20141212
  Serious: Yes (Hospitalization, Disabling, Other)
  Sender: FDA-Public Use
  Company Number: US-GILEAD-2014-0093157

PATIENT
  Age: 59 Year
  Sex: Male
  Weight: 79.5 kg

DRUGS (9)
  1. EFAVIRENZ/EMTRICITABINE/TENOFOVIR DISOPROXIL FUMARATE [Suspect]
     Indication: HIV INFECTION
     Dosage: 1 DF, QD
     Route: 048
     Dates: start: 20131028, end: 20140112
  2. ATARAX                             /00058401/ [Suspect]
     Indication: ANXIETY
     Dosage: UNK
     Route: 065
     Dates: end: 20140106
  3. MARIJUANA [Suspect]
     Indication: PRODUCT USED FOR UNKNOWN INDICATION
     Route: 065
  4. ATENOLOL [Concomitant]
     Route: 065
  5. FLUOXETINE [Concomitant]
     Route: 065
  6. HYDROCHLOROTHIAZIDE [Concomitant]
     Route: 065
  7. NABUMETONE [Concomitant]
     Route: 065
  8. PROVENTIL                          /00139501/ [Concomitant]
     Route: 065
  9. VISINE A [Concomitant]
     Route: 065

REACTIONS (1)
  - Delirium [Not Recovered/Not Resolved]
